FAERS Safety Report 8880144 (Version 2)
Quarter: 2012Q4

REPORT INFORMATION
  Report Type: 
  Country: US (occurrence: US)
  Receive Date: 20121031
  Receipt Date: 20121119
  Transmission Date: 20130627
  Serious: Yes (Other)
  Sender: FDA-Public Use
  Company Number: US-ROCHE-1145144

PATIENT
  Sex: Female

DRUGS (6)
  1. PERTUZUMAB [Suspect]
     Indication: BREAST CANCER METASTATIC
     Route: 042
     Dates: start: 20120709, end: 20121011
  2. TRASTUZUMAB [Suspect]
     Indication: BREAST CANCER
     Route: 042
     Dates: start: 20120709
  3. TAXOTERE [Suspect]
     Indication: BREAST CANCER METASTATIC
     Route: 042
     Dates: start: 20120709
  4. DECADRON [Concomitant]
  5. BENADRYL [Concomitant]
  6. ZANTAC [Concomitant]

REACTIONS (5)
  - Flushing [Recovered/Resolved]
  - Rash [Recovered/Resolved]
  - Hypoaesthesia oral [Recovered/Resolved]
  - Chest discomfort [Recovered/Resolved]
  - Pruritus [Recovered/Resolved]
